FAERS Safety Report 17004713 (Version 8)
Quarter: 2023Q4

REPORT INFORMATION
  Report Type: Spontaneous
  Country: US (occurrence: US)
  Receive Date: 20191107
  Receipt Date: 20231005
  Transmission Date: 20240109
  Serious: No
  Sender: FDA-Public Use
  Company Number: US-PFIZER INC-2019322752

PATIENT
  Age: 60 Year
  Sex: Male
  Weight: 74.84 kg

DRUGS (14)
  1. XELJANZ [Suspect]
     Active Substance: TOFACITINIB CITRATE
     Indication: Colitis ulcerative
     Dosage: 5 MG, 2X/DAY
  2. XELJANZ [Suspect]
     Active Substance: TOFACITINIB CITRATE
     Dosage: 10 MG, 2X/DAY
     Dates: start: 20190530
  3. XELJANZ [Suspect]
     Active Substance: TOFACITINIB CITRATE
     Dosage: UNK
     Dates: start: 20190701
  4. XELJANZ [Suspect]
     Active Substance: TOFACITINIB CITRATE
     Dosage: 5 MG, 2X/DAY
     Dates: start: 201909
  5. XELJANZ [Suspect]
     Active Substance: TOFACITINIB CITRATE
     Dosage: UNK UNK, 1X/DAY
     Dates: start: 202001, end: 202001
  6. XELJANZ [Suspect]
     Active Substance: TOFACITINIB CITRATE
     Dosage: 5 MG, 2X/DAY
     Dates: start: 201905
  7. XELJANZ [Suspect]
     Active Substance: TOFACITINIB CITRATE
  8. ZITHROMAX [Concomitant]
     Active Substance: AZITHROMYCIN DIHYDRATE
     Dosage: UNK
  9. OMEPRAZOLE [Concomitant]
     Active Substance: OMEPRAZOLE
     Dosage: UNK
  10. VITAMIN C [Concomitant]
     Active Substance: ASCORBIC ACID
     Dosage: UNK
  11. LISINOPRIL [Concomitant]
     Active Substance: LISINOPRIL
     Dosage: UNK
  12. VITAMIN E [Concomitant]
     Active Substance: .ALPHA.-TOCOPHEROL
     Dosage: UNK
  13. VITAMIN D3 [Concomitant]
     Active Substance: CHOLECALCIFEROL
     Dosage: UNK
  14. MODERNA COVID-19 VACCINE [Concomitant]
     Active Substance: ELASOMERAN
     Dosage: DOSE NUMBER UNKNOWN (BOOSTER), SINGLE

REACTIONS (10)
  - Product dose omission issue [Unknown]
  - Intentional product misuse [Unknown]
  - Fatigue [Not Recovered/Not Resolved]
  - Visual impairment [Recovered/Resolved]
  - Feeling abnormal [Not Recovered/Not Resolved]
  - Sinusitis [Unknown]
  - Blood pressure increased [Unknown]
  - Gastrointestinal disorder [Unknown]
  - SARS-CoV-2 test positive [Unknown]
  - Intentional product misuse [Unknown]

NARRATIVE: CASE EVENT DATE: 20181101
